FAERS Safety Report 18503332 (Version 2)
Quarter: 2021Q1

REPORT INFORMATION
  Report Type: Report from Study
  Country: RU (occurrence: RU)
  Receive Date: 20201113
  Receipt Date: 20210105
  Transmission Date: 20210419
  Serious: Yes (Hospitalization, Other)
  Sender: FDA-Public Use
  Company Number: NVSC2020RU293768

PATIENT
  Age: 17 Year
  Weight: 69 kg

DRUGS (29)
  1. CICLOSPORIN [Suspect]
     Active Substance: CYCLOSPORINE
     Indication: HYPEREOSINOPHILIC SYNDROME
     Dosage: 200 MG
     Route: 065
     Dates: start: 20120113, end: 20120406
  2. METHOTREXATE. [Suspect]
     Active Substance: METHOTREXATE
     Indication: HYPEREOSINOPHILIC SYNDROME
     Dosage: 30 MG/M2, QW
     Route: 065
  3. PREDNISOLONE. [Suspect]
     Active Substance: PREDNISOLONE
     Dosage: 25 MG, QD
     Route: 065
  4. CYCLOPHOSPHAN [Concomitant]
     Active Substance: CYCLOPHOSPHAMIDE
     Indication: PRODUCT USED FOR UNKNOWN INDICATION
     Dosage: 200 MG/M2, ONCE/SINGLE
     Route: 042
     Dates: start: 20110615
  5. MESNA. [Concomitant]
     Active Substance: MESNA
     Indication: PRODUCT USED FOR UNKNOWN INDICATION
     Dosage: 80 MG, TID
     Route: 041
  6. SANDIMMUN [Suspect]
     Active Substance: CYCLOSPORINE
     Dosage: 225 MG
     Route: 065
     Dates: start: 20100609
  7. SANDIMMUN [Suspect]
     Active Substance: CYCLOSPORINE
     Dosage: 5 MG/KG, QD
     Route: 065
     Dates: start: 20100621, end: 20120113
  8. PREDNISOLONE. [Suspect]
     Active Substance: PREDNISOLONE
     Dosage: 15 MG, QD
     Route: 065
     Dates: start: 20110124, end: 20110418
  9. PREDNISOLONE. [Suspect]
     Active Substance: PREDNISOLONE
     Dosage: 30 MG, QD
     Route: 065
     Dates: start: 20151231
  10. PREDNISOLONE. [Suspect]
     Active Substance: PREDNISOLONE
     Dosage: 10 MG, QD
     Route: 065
     Dates: start: 20151027, end: 20151229
  11. ENALAPRIL [Concomitant]
     Active Substance: ENALAPRIL
     Indication: PRODUCT USED FOR UNKNOWN INDICATION
     Dosage: 1 DF, BID (5MG IN MORNING AND 2.5MG EVENING)
     Route: 065
  12. ZOLEDRONIC [Concomitant]
     Active Substance: ZOLEDRONIC ACID
     Indication: PRODUCT USED FOR UNKNOWN INDICATION
     Dosage: 4 MG
     Route: 065
  13. CYCLOPHOSPHAMIDE. [Suspect]
     Active Substance: CYCLOPHOSPHAMIDE
     Indication: PRODUCT USED FOR UNKNOWN INDICATION
     Dosage: UNK
     Route: 065
  14. PREDNISOLONE. [Suspect]
     Active Substance: PREDNISOLONE
     Dosage: 90 MG, QD
     Route: 065
  15. CYCLOPHOSPHAN [Concomitant]
     Active Substance: CYCLOPHOSPHAMIDE
     Dosage: 200 MG/M2
     Route: 042
     Dates: start: 20110622
  16. ESOMEPRAZOLE. [Concomitant]
     Active Substance: ESOMEPRAZOLE MAGNESIUM
     Indication: PRODUCT USED FOR UNKNOWN INDICATION
     Dosage: 20 MG, QD
     Route: 065
  17. CICLOSPORIN [Suspect]
     Active Substance: CYCLOSPORINE
     Dosage: 275 MG, QD
     Route: 065
     Dates: start: 20151027, end: 20151229
  18. PREDNISOLONE. [Suspect]
     Active Substance: PREDNISOLONE
     Dosage: 1.25 MG, Q3W
     Route: 065
  19. SANDIMMUN [Suspect]
     Active Substance: CYCLOSPORINE
     Dosage: 225 MG, QD
     Route: 065
     Dates: end: 20200924
  20. PREDNISOLONE. [Suspect]
     Active Substance: PREDNISOLONE
     Dosage: 10 MG, QD
     Route: 065
     Dates: start: 20120621
  21. PREDNISOLONE. [Suspect]
     Active Substance: PREDNISOLONE
     Dosage: UNK (10 MG ? 6.25MG)
     Route: 065
     Dates: start: 20150405
  22. PREDNISOLONE. [Suspect]
     Active Substance: PREDNISOLONE
     Dosage: 10 MG, QD
     Route: 065
     Dates: start: 20160323
  23. CICLOSPORIN [Suspect]
     Active Substance: CYCLOSPORINE
     Dosage: 300 MG, QD
     Route: 065
  24. PREDNISOLONE. [Suspect]
     Active Substance: PREDNISOLONE
     Indication: PRODUCT USED FOR UNKNOWN INDICATION
     Dosage: 15 MG, Q2W  (PERIODICALLY, EVERY 2ND DAY)
     Route: 065
     Dates: start: 20100801, end: 20101107
  25. SANDIMMUN [Suspect]
     Active Substance: CYCLOSPORINE
     Indication: HYPEREOSINOPHILIC SYNDROME
     Dosage: 5 MG/KG, QD
     Route: 065
     Dates: start: 20090924
  26. CICLOSPORIN [Suspect]
     Active Substance: CYCLOSPORINE
     Dosage: 275 MG, QD
     Route: 065
  27. PREDNISOLONE. [Suspect]
     Active Substance: PREDNISOLONE
     Dosage: 10 MG, QD
     Route: 065
     Dates: start: 20121114
  28. 6?MERCAPTOPURINE MONOHYDRATE [Suspect]
     Active Substance: MERCAPTOPURINE
     Indication: PRODUCT USED FOR UNKNOWN INDICATION
     Dosage: 50 MG/M2, QD
     Route: 065
     Dates: start: 20100801, end: 20101107
  29. CYCLOPHOSPHAN [Concomitant]
     Active Substance: CYCLOPHOSPHAMIDE
     Dosage: 200 MG/M2
     Route: 042
     Dates: start: 20110629

REACTIONS (22)
  - Autonomic nervous system imbalance [Unknown]
  - Product use in unapproved indication [Unknown]
  - Gingival bleeding [Recovered/Resolved]
  - Skin papilloma [Recovered/Resolved]
  - Hypertension [Unknown]
  - Hyperadrenocorticism [Unknown]
  - Rash [Unknown]
  - Gingival hypertrophy [Recovered/Resolved]
  - Growth retardation [Unknown]
  - Hepatotoxicity [Unknown]
  - Condition aggravated [Unknown]
  - Tachycardia [Unknown]
  - Drug ineffective [Unknown]
  - Urticaria [Unknown]
  - Rash maculo-papular [Unknown]
  - Pruritus [Unknown]
  - Swelling [Unknown]
  - Cushing^s syndrome [Unknown]
  - Hirsutism [Unknown]
  - Hypereosinophilic syndrome [Unknown]
  - Nasal turbinate hypertrophy [Recovered/Resolved]
  - Eosinophilia [Unknown]

NARRATIVE: CASE EVENT DATE: 20110510
